FAERS Safety Report 4951794-8 (Version None)
Quarter: 2006Q1

REPORT INFORMATION
  Report Type: 
  Country: None (occurrence: None)
  Receive Date: 20060322
  Receipt Date: 20060322
  Transmission Date: 20060701
  Serious: Yes (Hospitalization)
  Sender: FDA-Public Use
  Company Number: None

PATIENT
  Age: 21 Year
  Sex: Male
  Weight: 106.6 kg

DRUGS (2)
  1. SIMVASTATIN 400 MG TAB [Suspect]
     Indication: HYPERLIPIDAEMIA
     Dosage: 1/2 TAB. QHS ORAL
     Route: 048
     Dates: start: 20060112, end: 20060126
  2. DILTIAZEM [Concomitant]

REACTIONS (2)
  - MYALGIA [None]
  - MYOSITIS [None]
